FAERS Safety Report 11261760 (Version 1)
Quarter: 2015Q3

REPORT INFORMATION
  Report Type: Spontaneous
  Country: CH (occurrence: CH)
  Receive Date: 20150710
  Receipt Date: 20150710
  Transmission Date: 20151125
  Serious: Yes (Death, Other)
  Sender: FDA-Public Use
  Company Number: CH-GILEAD-2015-0161991

PATIENT
  Age: 50 Year
  Sex: Male

DRUGS (1)
  1. HARVONI [Suspect]
     Active Substance: LEDIPASVIR\SOFOSBUVIR
     Dosage: 1 DF, UNK
     Route: 048
     Dates: start: 20150418, end: 20150515

REACTIONS (3)
  - Cholangiocarcinoma [Unknown]
  - Metastases to lung [Unknown]
  - Death [Fatal]

NARRATIVE: CASE EVENT DATE: 201505
